FAERS Safety Report 12482054 (Version 1)
Quarter: 2016Q2

REPORT INFORMATION
  Report Type: Spontaneous
  Country: US (occurrence: US)
  Receive Date: 20160620
  Receipt Date: 20160620
  Transmission Date: 20160815
  Serious: Yes (Hospitalization, Other)
  Sender: FDA-Public Use
  Company Number: US-BAYER-2016-117014

PATIENT
  Age: 67 Year
  Sex: Male

DRUGS (1)
  1. ACETYLSALICYLIC ACID (} 100 MG) [Suspect]
     Active Substance: ASPIRIN

REACTIONS (5)
  - Melaena [None]
  - Gastrointestinal ulcer [None]
  - Gastrointestinal stromal tumour [None]
  - Iron deficiency anaemia [Recovered/Resolved]
  - Weight decreased [None]
